FAERS Safety Report 13272192 (Version 2)
Quarter: 2017Q1

REPORT INFORMATION
  Report Type: Report from Study
  Country: JP (occurrence: JP)
  Receive Date: 20170227
  Receipt Date: 20170306
  Transmission Date: 20170428
  Serious: Yes (Death, Hospitalization, Other)
  Sender: FDA-Public Use
  Company Number: JP-GLAXOSMITHKLINE-B0794271A

PATIENT
  Age: 68 Year
  Sex: Female
  Weight: 44 kg

DRUGS (16)
  1. FLOLAN [Suspect]
     Active Substance: EPOPROSTENOL SODIUM
     Indication: PULMONARY ARTERIAL HYPERTENSION
     Dosage: UNK
     Route: 042
     Dates: start: 20120305, end: 20120405
  2. RENIVACE [Concomitant]
     Active Substance: ENALAPRIL
     Dosage: UNK
     Dates: end: 20120304
  3. ADCIRCA [Concomitant]
     Active Substance: TADALAFIL
     Indication: PULMONARY ARTERIAL HYPERTENSION
     Dosage: 20 MG, BID
     Route: 048
     Dates: start: 20120226, end: 20120404
  4. FUROSEMIDE. [Concomitant]
     Active Substance: FUROSEMIDE
     Dosage: UNK
     Dates: end: 20120404
  5. PARIET [Concomitant]
     Active Substance: RABEPRAZOLE SODIUM
     Dosage: UNK
     Dates: end: 20120404
  6. ALLEGRA [Concomitant]
     Active Substance: FEXOFENADINE HYDROCHLORIDE
     Dosage: UNK
     Dates: end: 20120404
  7. ONEALFA [Concomitant]
     Active Substance: ALFACALCIDOL
     Dosage: UNK
     Dates: end: 20120404
  8. AMBRISENTAN [Suspect]
     Active Substance: AMBRISENTAN
     Dosage: 5 MG, QD
     Route: 048
     Dates: start: 20120229, end: 20120323
  9. AMBRISENTAN [Suspect]
     Active Substance: AMBRISENTAN
     Dosage: 7.5 MG, QD
     Route: 048
     Dates: start: 20120324, end: 20120404
  10. ALDACTONE A [Concomitant]
     Active Substance: SPIRONOLACTONE
     Dosage: UNK
     Dates: end: 20120404
  11. FERROMIA (JAPAN) [Concomitant]
     Dosage: UNK
     Dates: start: 20120316, end: 20120404
  12. AMBRISENTAN [Suspect]
     Active Substance: AMBRISENTAN
     Indication: PULMONARY ARTERIAL HYPERTENSION
     Dosage: 2.5 MG, QD
     Route: 048
     Dates: start: 20120228, end: 20120228
  13. HEPARIN SODIUM. [Suspect]
     Active Substance: HEPARIN SODIUM
     Route: 042
  14. WARFARIN [Suspect]
     Active Substance: WARFARIN
     Dosage: UNK
     Route: 048
     Dates: end: 20120325
  15. PROCYLIN [Concomitant]
     Active Substance: BERAPROST SODIUM
     Indication: PULMONARY ARTERIAL HYPERTENSION
     Dosage: UNK
     Dates: end: 20120313
  16. SAMSCA [Concomitant]
     Active Substance: TOLVAPTAN
     Dosage: 15 MG, QD
     Route: 048
     Dates: start: 20120309, end: 20120404

REACTIONS (11)
  - Pulmonary congestion [Not Recovered/Not Resolved]
  - Dyspnoea [Unknown]
  - Cardiac failure [Not Recovered/Not Resolved]
  - Pulmonary alveolar haemorrhage [Fatal]
  - Pulmonary hypertension [Unknown]
  - Pulmonary vein occlusion [Unknown]
  - Sepsis [Fatal]
  - Infection [Unknown]
  - Haemoptysis [Unknown]
  - Computerised tomogram abnormal [Unknown]
  - Visceral congestion [Not Recovered/Not Resolved]

NARRATIVE: CASE EVENT DATE: 20120302
